FAERS Safety Report 11198131 (Version 1)
Quarter: 2015Q2

REPORT INFORMATION
  Report Type: Spontaneous
  Country: CA (occurrence: CA)
  Receive Date: 20150618
  Receipt Date: 20150618
  Transmission Date: 20150821
  Serious: Yes (Other)
  Sender: FDA-Public Use
  Company Number: CA-JNJFOC-20150609905

PATIENT
  Sex: Female

DRUGS (5)
  1. ANTIPSYCHOTIC DRUGS NOS [Concomitant]
     Indication: SCHIZOPHRENIA
     Route: 065
  2. TYLENOL [Suspect]
     Active Substance: ACETAMINOPHEN
     Route: 048
  3. SEROQUEL [Concomitant]
     Active Substance: QUETIAPINE FUMARATE
     Indication: PSYCHOTIC DISORDER
     Route: 065
  4. TYLENOL [Suspect]
     Active Substance: ACETAMINOPHEN
     Indication: SLEEP DISORDER THERAPY
     Route: 048
  5. ANTIPSYCHOTIC DRUGS NOS [Concomitant]
     Indication: ASPERGER^S DISORDER
     Route: 065

REACTIONS (5)
  - Hepatic enzyme increased [Unknown]
  - Hepatic steatosis [Unknown]
  - Drug dependence [Unknown]
  - Off label use [Unknown]
  - Therapeutic response unexpected [Unknown]

NARRATIVE: CASE EVENT DATE: 201312
